FAERS Safety Report 26009221 (Version 1)
Quarter: 2025Q4

REPORT INFORMATION
  Report Type: Spontaneous
  Country: JP (occurrence: JP)
  Receive Date: 20251107
  Receipt Date: 20251107
  Transmission Date: 20260117
  Serious: Yes (Hospitalization)
  Sender: CELLTRION
  Company Number: JP-JPNKAYAKU-2025JPNK052443

PATIENT

DRUGS (2)
  1. ADALIMUMAB [Suspect]
     Active Substance: ADALIMUMAB
     Indication: Maternal exposure timing unspecified
     Dosage: 80 MILLIGRAM, BI-WEEKLY
     Route: 064
     Dates: start: 20240828
  2. ADALIMUMAB [Suspect]
     Active Substance: ADALIMUMAB

REACTIONS (2)
  - Jaundice neonatal [Recovered/Resolved]
  - Foetal exposure during pregnancy [Unknown]

NARRATIVE: CASE EVENT DATE: 20250228
